FAERS Safety Report 4881270-2 (Version None)
Quarter: 2005Q4

REPORT INFORMATION
  Report Type: 
  Country: None (occurrence: None)
  Receive Date: 20051212
  Receipt Date: 20051104
  Transmission Date: 20060501
  Serious: Yes (Hospitalization)
  Sender: FDA-Public Use
  Company Number: 2005-02011

PATIENT
  Age: 64 Year
  Sex: Male
  Weight: 96.3 kg

DRUGS (14)
  1. VELCADE [Suspect]
     Indication: MULTIPLE MYELOMA
     Dosage: 1.30 MG/M2, 2/WEEK, INTRAVENOUS
     Route: 042
     Dates: start: 20050809, end: 20050906
  2. DOXIL [Suspect]
     Indication: MULTIPLE MYELOMA
     Dosage: 30.00 MG/M2, INTRAVENOUS
     Route: 042
     Dates: start: 20050812, end: 20050812
  3. HYDROCHLOROTHIAZIDE [Concomitant]
  4. ASPIRIN [Concomitant]
  5. PERCOCET [Concomitant]
  6. ATIVAN [Concomitant]
  7. DECADRON PHOSPHATE [Concomitant]
  8. COMPAZINE [Concomitant]
  9. VITAMIN B6 [Concomitant]
  10. ZOFRAN [Concomitant]
  11. ZOMETA [Concomitant]
  12. COUMADIN [Concomitant]
  13. NEXIUM [Concomitant]
  14. METOPROLOL (METOPROLOL) [Concomitant]

REACTIONS (2)
  - HYPOTENSION [None]
  - ILEUS [None]
